FAERS Safety Report 9213376 (Version 2)
Quarter: 2013Q2

REPORT INFORMATION
  Report Type: Spontaneous
  Country: DE (occurrence: DE)
  Receive Date: 20130405
  Receipt Date: 20130426
  Transmission Date: 20140414
  Serious: Yes (Hospitalization)
  Sender: FDA-Public Use
  Company Number: PHHY2013DE032959

PATIENT
  Sex: Male
  Weight: 75 kg

DRUGS (1)
  1. ZOMETA [Suspect]
     Indication: BONE LESION
     Dosage: 4 MG, QUARTERLY
     Dates: start: 2010

REACTIONS (2)
  - Clavicle fracture [Unknown]
  - Accident [Unknown]
